FAERS Safety Report 14181130 (Version 3)
Quarter: 2017Q4

REPORT INFORMATION
  Report Type: Spontaneous
  Country: US (occurrence: US)
  Receive Date: 20171112
  Receipt Date: 20171213
  Transmission Date: 20180321
  Serious: No
  Sender: FDA-Public Use
  Company Number: US-TEVA-824491ACC

PATIENT
  Age: 52 Year
  Sex: Female

DRUGS (2)
  1. PARAGARD T 380A [Suspect]
     Active Substance: COPPER
     Indication: CONTRACEPTION
  2. MULTIVITAMIN [Concomitant]
     Active Substance: VITAMINS

REACTIONS (5)
  - Device expulsion [Recovered/Resolved]
  - Menstruation irregular [Unknown]
  - Vaginal haemorrhage [Unknown]
  - Device breakage [Not Recovered/Not Resolved]
  - Complication associated with device [Unknown]
